FAERS Safety Report 6534961-1 (Version None)
Quarter: 2010Q1

REPORT INFORMATION
  Report Type: 
  Country: None (occurrence: None)
  Receive Date: 20100112
  Receipt Date: 20100107
  Transmission Date: 20100710
  Serious: Yes (Death)
  Sender: FDA-Public Use
  Company Number: LK-ABBOTT-10P-145-0618083-00

PATIENT
  Age: 55 Year
  Sex: Male

DRUGS (1)
  1. KLARID [Suspect]
     Indication: PNEUMONIA PRIMARY ATYPICAL
     Route: 042

REACTIONS (1)
  - CARDIOTOXICITY [None]
